FAERS Safety Report 7028797-5 (Version None)
Quarter: 2010Q4

REPORT INFORMATION
  Report Type: 
  Country: None (occurrence: None)
  Receive Date: 20101004
  Receipt Date: 20101004
  Transmission Date: 20110411
  Serious: Yes (Other)
  Sender: FDA-Public Use
  Company Number: None

PATIENT
  Age: 60 Year
  Sex: Female
  Weight: 74.8435 kg

DRUGS (2)
  1. NEUPOGEN [Suspect]
     Indication: WHITE BLOOD CELL COUNT DECREASED
     Dosage: 400 MCG 3 SHOTS IV
     Route: 042
     Dates: start: 20100908, end: 20100913
  2. NEUPOGEN [Suspect]
     Indication: WHITE BLOOD CELL COUNT DECREASED
     Dosage: 400 MCG 3 SHOTS IV
     Route: 042
     Dates: start: 20100909, end: 20100913

REACTIONS (1)
  - MIGRAINE [None]
